FAERS Safety Report 19737904 (Version 1)
Quarter: 2021Q3

REPORT INFORMATION
  Report Type: Spontaneous
  Country: CN (occurrence: CN)
  Receive Date: 20210824
  Receipt Date: 20210824
  Transmission Date: 20211014
  Serious: Yes (Hospitalization, Other)
  Sender: FDA-Public Use
  Company Number: CN-009507513-2108CHN005922

PATIENT
  Age: 73 Year
  Sex: Male
  Weight: 62 kg

DRUGS (6)
  1. KEYTRUDA [Suspect]
     Active Substance: PEMBROLIZUMAB
     Indication: NASOPHARYNGEAL CANCER
     Dosage: 200 MG, ONCE
     Route: 048
     Dates: start: 20210717, end: 20210717
  2. SODIUM CHLORIDE. [Concomitant]
     Active Substance: SODIUM CHLORIDE
     Dosage: 100 ML, ONCE
     Route: 041
     Dates: start: 20210718, end: 20210718
  3. CISPLATIN. [Suspect]
     Active Substance: CISPLATIN
     Indication: NASOPHARYNGEAL CANCER
     Dosage: 30 MG, ONCE
     Route: 041
     Dates: start: 20210720, end: 20210720
  4. GEMCITABINE. [Suspect]
     Active Substance: GEMCITABINE
     Indication: NASOPHARYNGEAL CANCER
     Dosage: 1.6 G, ONCE
     Route: 041
     Dates: start: 20210718, end: 20210718
  5. SODIUM CHLORIDE. [Concomitant]
     Active Substance: SODIUM CHLORIDE
     Indication: MEDICATION DILUTION
     Dosage: 100 ML, ONCE
     Route: 041
     Dates: start: 20210717, end: 20210717
  6. SODIUM CHLORIDE. [Concomitant]
     Active Substance: SODIUM CHLORIDE
     Dosage: 250 ML, ONCE
     Route: 041
     Dates: start: 20210720, end: 20210720

REACTIONS (1)
  - Myelosuppression [Recovering/Resolving]

NARRATIVE: CASE EVENT DATE: 20210730
